FAERS Safety Report 25084457 (Version 2)
Quarter: 2025Q1

REPORT INFORMATION
  Report Type: Spontaneous
  Country: IT (occurrence: IT)
  Receive Date: 20250317
  Receipt Date: 20250325
  Transmission Date: 20250408
  Serious: Yes (Death, Hospitalization)
  Sender: PFIZER
  Company Number: None

PATIENT
  Age: 59 Year
  Sex: Female
  Weight: 78 kg

DRUGS (17)
  1. CARBOPLATIN [Suspect]
     Active Substance: CARBOPLATIN
     Indication: Small cell lung cancer
     Dosage: 600 MG Q3W
     Route: 042
     Dates: start: 20250127, end: 20250127
  2. TECENTRIQ [Suspect]
     Active Substance: ATEZOLIZUMAB
     Indication: Small cell lung cancer
     Dosage: 1200 MG Q3W
     Route: 042
     Dates: start: 20250127, end: 20250127
  3. ETOPOSIDE [Suspect]
     Active Substance: ETOPOSIDE
     Indication: Small cell lung cancer
     Route: 042
     Dates: start: 20250127, end: 20250129
  4. ACETYLCARNITINE [Concomitant]
     Active Substance: ACETYLCARNITINE
     Dosage: FREQ:12 H;1 CAPSULE X 2 / DIE
  5. ACETYLCYSTEINE [Concomitant]
     Active Substance: ACETYLCYSTEINE
     Dosage: FREQ:12H; ACETYLCISTEINE 1 TABLET X 2 / DIE
     Route: 048
  6. PREDNISONE [Concomitant]
     Active Substance: PREDNISONE
     Dosage: FREQ:24 H;DELTACORTENE 25 MG 1/2 TABLET DAILY
     Route: 048
  7. ESTAZOLAM [Concomitant]
     Active Substance: ESTAZOLAM
     Dosage: FREQ:24 HOURS; ESILGAN 2 MG 1 TABLET/DAILY
     Route: 048
  8. FOSTER [Concomitant]
     Active Substance: BECLOMETHASONE\FORMOTEROL
     Dosage: FREQ:24 H; 200 MCG 2 INHALES IN THE MORNING AND EVENING + 1 INHALATION IN THE AFTERNOON
  9. FOSTER [Concomitant]
     Active Substance: BECLOMETHASONE\FORMOTEROL
     Dosage: FREQ:24 H; 200 MCG 2 INHALES IN THE MORNING AND EVENING + 1 INHALATION IN THE AFTERNOON
  10. LYRICA [Concomitant]
     Active Substance: PREGABALIN
     Dosage: FREQ:12 H; LYRICA 150 MG IN THE MORNING AND 150 MG IN THE EVENING
     Route: 048
  11. MONTELUKAST [Concomitant]
     Active Substance: MONTELUKAST
     Dosage: FREQ:24 HOURS; MONTELUKAST 10 MG 1 TABLET DAILY AT 8:00
     Route: 048
  12. QUETIAPINE [Concomitant]
     Active Substance: QUETIAPINE
     Dosage: FREQ:24 HOURS; QUETIAPINE 25 MG 1 TABLET/DAY
     Route: 048
  13. SPIRIVA [Concomitant]
     Active Substance: TIOTROPIUM BROMIDE MONOHYDRATE
     Dosage: FREQ:24 H; 2 INHALATIONS IN THE AFTERNOON
     Route: 055
  14. VENLAFAXINE [Concomitant]
     Active Substance: VENLAFAXINE HYDROCHLORIDE
     Dosage: FREQ:24 H; VENLAFAXINE 75 MG AT 8:00 + VENLAFAXINE 37.5 MG AT 12:00
     Route: 048
  15. VENLAFAXINE [Concomitant]
     Active Substance: VENLAFAXINE HYDROCHLORIDE
     Dosage: FREQ:24 H; VENLAFAXINE 75 MG AT 8:00 + VENLAFAXINE 37.5 MG AT 12:00
  16. ESOMEPRAZOLE [Concomitant]
     Active Substance: ESOMEPRAZOLE
     Dosage: FREQ:24 H; ESOMEPRAZOLE 40 MG 1 TABLET/DA
     Route: 048
  17. MEMANTINE [Concomitant]
     Active Substance: MEMANTINE
     Dosage: FREQ:24H; MEMANTINE 20 MG 1/2 TABLET/DAY
     Route: 048

REACTIONS (4)
  - Leukopenia [Fatal]
  - Thrombocytopenia [Fatal]
  - Respiratory distress [Unknown]
  - Off label use [Unknown]

NARRATIVE: CASE EVENT DATE: 20250127
